FAERS Safety Report 6608490-0 (Version None)
Quarter: 2010Q1

REPORT INFORMATION
  Report Type: 
  Country: None (occurrence: None)
  Receive Date: 20100226
  Receipt Date: 20100226
  Transmission Date: 20100710
  Serious: Yes (Other)
  Sender: FDA-Public Use
  Company Number: None

PATIENT
  Sex: Male
  Weight: 77.3837 kg

DRUGS (1)
  1. TYLENOL W/ CODEINE NO. 4 [Suspect]
     Indication: MUSCULOSKELETAL PAIN
     Dosage: 1-2 TABLETS EVERY 4-6 HOURS PO, 13 YEARS AGO
     Route: 048

REACTIONS (1)
  - RASH GENERALISED [None]
